FAERS Safety Report 5765008-2 (Version None)
Quarter: 2008Q2

REPORT INFORMATION
  Report Type: 
  Country: None (occurrence: None)
  Receive Date: 20080611
  Receipt Date: 20080529
  Transmission Date: 20081010
  Serious: Yes (Hospitalization, Other)
  Sender: FDA-Public Use
  Company Number: US-ELI_LILLY_AND_COMPANY-US200805005984

PATIENT
  Sex: Female
  Weight: 116.1 kg

DRUGS (6)
  1. BYETTA [Suspect]
     Indication: TYPE 2 DIABETES MELLITUS
     Dosage: 5 UG, 2/D
     Route: 058
  2. BYETTA [Suspect]
     Dosage: 10 UG, 2/D
     Route: 058
  3. BYETTA [Suspect]
     Dosage: 5 UG, 2/D
     Route: 058
     Dates: end: 20070101
  4. ACTOS [Concomitant]
     Dates: end: 20070101
  5. HUMULIN                                 /PRI/ [Concomitant]
     Dosage: 24 U, DAILY (1/D)
     Dates: end: 20070101
  6. INSULIN INSULATARD NPH NORDISK [Concomitant]
     Dosage: 50 U, DAILY (1/D)
     Dates: end: 20070101

REACTIONS (6)
  - ASTHENIA [None]
  - HYPOKALAEMIA [None]
  - NAUSEA [None]
  - PANCREATITIS [None]
  - VOMITING [None]
  - WEIGHT DECREASED [None]
